FAERS Safety Report 8816782 (Version 2)
Quarter: 2013Q4

REPORT INFORMATION
  Report Type: Spontaneous
  Country: GB (occurrence: None)
  Receive Date: 20121001
  Receipt Date: 20131223
  Transmission Date: 20140711
  Serious: Yes (Death, Other)
  Sender: FDA-Public Use
  Company Number: EUS-2012-00740

PATIENT
  Age: 53 Year
  Sex: Female

DRUGS (1)
  1. ASPARAGINASE [Suspect]
     Indication: ANGIOIMMUNOBLASTIC T-CELL LYMPHOMA

REACTIONS (5)
  - Autoimmune haemolytic anaemia [None]
  - Diffuse large B-cell lymphoma [None]
  - Epstein-Barr viraemia [None]
  - Hodgkin^s disease [None]
  - Epstein-Barr virus associated lymphoma [None]
